FAERS Safety Report 18545636 (Version 1)
Quarter: 2020Q4

REPORT INFORMATION
  Report Type: Spontaneous
  Country: US (occurrence: US)
  Receive Date: 20201125
  Receipt Date: 20201125
  Transmission Date: 20210114
  Serious: Yes (Other)
  Sender: FDA-Public Use
  Company Number: US-BAYER-2020-254324

PATIENT
  Age: 76 Year
  Sex: Male

DRUGS (11)
  1. VITAMINS NOS [Concomitant]
     Active Substance: VITAMINS
  2. ASPIRIN (PAIN AND FEVER) [Suspect]
     Active Substance: ASPIRIN
  3. FAMOTIDINE. [Concomitant]
     Active Substance: FAMOTIDINE
  4. CALCITRIOL. [Concomitant]
     Active Substance: CALCITRIOL
  5. DILANTIN [Concomitant]
     Active Substance: PHENYTOIN
  6. PHENOBARBITAL. [Concomitant]
     Active Substance: PHENOBARBITAL
  7. ALLOPURINOL. [Concomitant]
     Active Substance: ALLOPURINOL
  8. SIMVASTATIN. [Concomitant]
     Active Substance: SIMVASTATIN
  9. LEVOTHYROXINE. [Concomitant]
     Active Substance: LEVOTHYROXINE
  10. CALCIUM [Concomitant]
     Active Substance: CALCIUM
  11. SENNA [Concomitant]
     Active Substance: SENNA LEAF\SENNOSIDES\SENNOSIDES A AND B

REACTIONS (5)
  - Testicular haemorrhage [None]
  - Pain [None]
  - Haematocrit increased [None]
  - Internal haemorrhage [None]
  - Red blood cell count increased [None]

NARRATIVE: CASE EVENT DATE: 20200905
